FAERS Safety Report 10184054 (Version 2)
Quarter: 2014Q2

REPORT INFORMATION
  Report Type: Spontaneous
  Country: CN (occurrence: CN)
  Receive Date: 20140520
  Receipt Date: 20140619
  Transmission Date: 20141212
  Serious: Yes (Hospitalization)
  Sender: FDA-Public Use
  Company Number: CN-GLAXOSMITHKLINE-B0994960A

PATIENT
  Age: 63 Year
  Sex: Male
  Weight: 47.5 kg

DRUGS (6)
  1. HEPTODIN [Suspect]
     Indication: HEPATITIS B
     Dosage: 1TAB PER DAY
     Route: 048
     Dates: start: 20100405
  2. HEPTODIN [Suspect]
     Indication: HEPATITIS B
     Dosage: 1TAB PER DAY
     Route: 048
     Dates: start: 201011, end: 20140511
  3. HEPTODIN [Suspect]
     Indication: HEPATITIS B
     Dosage: 1TAB ALTERNATE DAYS
     Route: 048
     Dates: start: 20140512
  4. TRADITIONAL CHINESE MEDICINE [Concomitant]
     Indication: SPLEEN DISORDER
     Route: 048
  5. TRADITIONAL CHINESE MEDICINE [Concomitant]
     Indication: SPLEEN DISORDER
     Route: 048
  6. DRUG [Concomitant]
     Route: 048

REACTIONS (3)
  - Hepatic cirrhosis [Unknown]
  - Deafness [Not Recovered/Not Resolved]
  - Drug administration error [Unknown]
